FAERS Safety Report 8196946-1 (Version None)
Quarter: 2012Q1

REPORT INFORMATION
  Report Type: 
  Country: None (occurrence: None)
  Receive Date: 20120309
  Receipt Date: 20120229
  Transmission Date: 20120608
  Serious: Yes (Other)
  Sender: FDA-Public Use
  Company Number: US-JNJFOC-20120302277

PATIENT
  Sex: Female

DRUGS (10)
  1. FENTANYL-100 [Suspect]
     Indication: SJOGREN'S SYNDROME
     Route: 062
     Dates: start: 20120210
  2. REQUIP [Concomitant]
     Indication: RESTLESS LEGS SYNDROME
     Dosage: AT NIGHT
     Route: 048
  3. APRESOLINE [Concomitant]
     Indication: PRODUCT USED FOR UNKNOWN INDICATION
     Route: 048
  4. FENTANYL-100 [Suspect]
     Indication: FIBROMYALGIA
     Route: 062
     Dates: start: 20120210
  5. SYNTHROID [Concomitant]
     Indication: THYROID DISORDER
     Route: 049
  6. ZOCOR [Concomitant]
     Indication: BLOOD CHOLESTEROL
     Route: 048
  7. NEXIUM [Concomitant]
     Indication: GASTROOESOPHAGEAL REFLUX DISEASE
     Route: 048
  8. XANAX [Concomitant]
     Indication: NEUROPATHY PERIPHERAL
     Route: 048
  9. CELEXA [Concomitant]
     Indication: DEPRESSION
     Route: 048
  10. SINEMET [Concomitant]
     Indication: RESTLESS LEGS SYNDROME
     Dosage: 50/200 DAILY
     Route: 048

REACTIONS (5)
  - TOOTH ABSCESS [None]
  - DRUG INEFFECTIVE [None]
  - THERAPEUTIC RESPONSE DECREASED [None]
  - URINARY TRACT INFECTION [None]
  - RESTLESS LEGS SYNDROME [None]
